FAERS Safety Report 15089716 (Version 1)
Quarter: 2018Q2

REPORT INFORMATION
  Report Type: Spontaneous
  Country: CN (occurrence: CN)
  Receive Date: 20180629
  Receipt Date: 20180629
  Transmission Date: 20180711
  Serious: Yes (Hospitalization)
  Sender: FDA-Public Use
  Company Number: CN-ROCHE-2146932

PATIENT
  Age: 60 Year
  Sex: Female
  Weight: 45 kg

DRUGS (2)
  1. AVASTIN [Suspect]
     Active Substance: BEVACIZUMAB
     Indication: CERVIX CARCINOMA
     Route: 041
     Dates: start: 20180413, end: 20180428
  2. TROPISETRON [Concomitant]
     Active Substance: TROPISETRON
     Indication: VOMITING
     Route: 041
     Dates: start: 20180413, end: 20180415

REACTIONS (5)
  - Pollakiuria [Recovering/Resolving]
  - Micturition urgency [Recovering/Resolving]
  - Oedema peripheral [Unknown]
  - Off label use [Unknown]
  - Intentional product use issue [Unknown]

NARRATIVE: CASE EVENT DATE: 20180413
